FAERS Safety Report 10564077 (Version 1)
Quarter: 2014Q4

REPORT INFORMATION
  Report Type: Spontaneous
  Country: JP (occurrence: JP)
  Receive Date: 20141104
  Receipt Date: 20141104
  Transmission Date: 20150529
  Serious: Yes (Hospitalization, Other)
  Sender: FDA-Public Use
  Company Number: JP-ROXANE LABORATORIES, INC.-2014-RO-01660RO

PATIENT
  Age: 61 Year
  Sex: Male

DRUGS (4)
  1. FUROSEMIDE. [Suspect]
     Active Substance: FUROSEMIDE
     Indication: CARDIAC FAILURE CONGESTIVE
     Dosage: 40 MG
     Route: 065
  2. LOSARTAN POTASSIUM USP [Suspect]
     Active Substance: LOSARTAN POTASSIUM
     Indication: CARDIAC FAILURE CONGESTIVE
     Dosage: 50 MG
     Route: 065
  3. TRICHLORMETHIAZIDE [Suspect]
     Active Substance: TRICHLORMETHIAZIDE
     Indication: CARDIAC FAILURE CONGESTIVE
     Dosage: 1 MG
     Route: 065
  4. METHYLDIGOXIN [Suspect]
     Active Substance: METILDIGOXIN
     Indication: CARDIAC FAILURE CONGESTIVE
     Dosage: 0.1 MG
     Route: 065

REACTIONS (9)
  - Vitamin B1 decreased [Unknown]
  - Wernicke^s encephalopathy [Unknown]
  - Lactic acidosis [Unknown]
  - Myopathy [None]
  - Shoshin beriberi [Unknown]
  - Myalgia [Recovered/Resolved]
  - Metabolic acidosis [Unknown]
  - Acute kidney injury [Recovered/Resolved]
  - Cardiac failure congestive [Recovered/Resolved]
